FAERS Safety Report 6144448-6 (Version None)
Quarter: 2009Q2

REPORT INFORMATION
  Report Type: 
  Country: None (occurrence: None)
  Receive Date: 20090406
  Receipt Date: 20090401
  Transmission Date: 20091009
  Serious: Yes (Other)
  Sender: FDA-Public Use
  Company Number: DE-ROCHE-609989

PATIENT
  Sex: Male
  Weight: 85 kg

DRUGS (5)
  1. XELODA [Suspect]
     Route: 048
     Dates: start: 20080701
  2. AVASTIN [Suspect]
     Route: 042
     Dates: start: 20080701
  3. OXALIPLATIN [Concomitant]
     Route: 042
     Dates: start: 20080701
  4. BISOPROLOL [Concomitant]
     Route: 048
  5. ATACAND [Concomitant]
     Route: 048

REACTIONS (2)
  - CEREBRAL INFARCTION [None]
  - PALMAR-PLANTAR ERYTHRODYSAESTHESIA SYNDROME [None]
